FAERS Safety Report 8697160 (Version 27)
Quarter: 2016Q1

REPORT INFORMATION
  Report Type: Report from Study
  Country: CA (occurrence: CA)
  Receive Date: 20120801
  Receipt Date: 20160223
  Transmission Date: 20160526
  Serious: Yes (Hospitalization, Other)
  Sender: FDA-Public Use
  Company Number: CA-ROCHE-1092553

PATIENT
  Age: 64 Year
  Sex: Female
  Weight: 59.9 kg

DRUGS (22)
  1. ACTEMRA [Suspect]
     Active Substance: TOCILIZUMAB
     Route: 042
     Dates: start: 20130306
  2. ACTEMRA [Suspect]
     Active Substance: TOCILIZUMAB
     Route: 042
     Dates: start: 20151008
  3. ACTEMRA [Suspect]
     Active Substance: TOCILIZUMAB
     Route: 042
     Dates: start: 20151203
  4. GELNIQUE [Concomitant]
     Active Substance: OXYBUTYNIN CHLORIDE
  5. ACTEMRA [Suspect]
     Active Substance: TOCILIZUMAB
     Route: 042
     Dates: start: 20150121
  6. OXYCODONE [Concomitant]
     Active Substance: OXYCODONE
  7. ACTEMRA [Suspect]
     Active Substance: TOCILIZUMAB
     Route: 042
     Dates: start: 20131128
  8. ACTEMRA [Suspect]
     Active Substance: TOCILIZUMAB
     Route: 042
     Dates: start: 20151223
  9. CELEBREX [Concomitant]
     Active Substance: CELECOXIB
     Route: 065
  10. VESICARE [Concomitant]
     Active Substance: SOLIFENACIN SUCCINATE
  11. DOCUSATE [Concomitant]
     Active Substance: DOCUSATE
     Dosage: 2 PILLS DAILY AT NIGHT
     Route: 065
  12. NEXIUM [Concomitant]
     Active Substance: ESOMEPRAZOLE MAGNESIUM
  13. ACTEMRA [Suspect]
     Active Substance: TOCILIZUMAB
     Route: 042
     Dates: start: 20140612
  14. APOCAL [Concomitant]
  15. ACTEMRA [Suspect]
     Active Substance: TOCILIZUMAB
     Indication: RHEUMATOID ARTHRITIS
     Route: 042
     Dates: start: 20120305, end: 20120821
  16. ACTEMRA [Suspect]
     Active Substance: TOCILIZUMAB
     Route: 042
     Dates: start: 20140811
  17. LYRICA [Concomitant]
     Active Substance: PREGABALIN
  18. SENNA [Concomitant]
     Active Substance: SENNA LEAF\SENNOSIDES\SENNOSIDES A AND B
  19. EURO D [Concomitant]
  20. ACTEMRA [Suspect]
     Active Substance: TOCILIZUMAB
     Route: 042
     Dates: start: 20160120
  21. ACTEMRA [Suspect]
     Active Substance: TOCILIZUMAB
     Route: 042
     Dates: start: 20140306
  22. ACTEMRA [Suspect]
     Active Substance: TOCILIZUMAB
     Route: 042
     Dates: start: 20140403

REACTIONS (42)
  - Bone disorder [Unknown]
  - Bronchitis [Recovering/Resolving]
  - Dyspnoea [Unknown]
  - Diverticulitis [Not Recovered/Not Resolved]
  - Haemorrhoids [Not Recovered/Not Resolved]
  - Rheumatoid arthritis [Recovering/Resolving]
  - Bladder prolapse [Not Recovered/Not Resolved]
  - Rheumatoid arthritis [Not Recovered/Not Resolved]
  - Anorectal discomfort [Unknown]
  - Rheumatoid arthritis [Recovered/Resolved]
  - Scratch [Unknown]
  - Intestinal prolapse [Recovered/Resolved]
  - Proctalgia [Not Recovered/Not Resolved]
  - Vulvovaginal discomfort [Unknown]
  - Calcium deficiency [Not Recovered/Not Resolved]
  - Post procedural infection [Recovered/Resolved]
  - Arthralgia [Not Recovered/Not Resolved]
  - Dyspepsia [Unknown]
  - Musculoskeletal pain [Unknown]
  - Dysgeusia [Recovering/Resolving]
  - Skin papilloma [Recovered/Resolved]
  - Alopecia [Recovering/Resolving]
  - Sinusitis [Recovered/Resolved]
  - Localised infection [Recovered/Resolved]
  - Pain [Not Recovered/Not Resolved]
  - Influenza like illness [Not Recovered/Not Resolved]
  - Intestinal mass [Not Recovered/Not Resolved]
  - Mood altered [Unknown]
  - Intervertebral disc protrusion [Recovered/Resolved]
  - Tongue eruption [Unknown]
  - Swollen tongue [Unknown]
  - Muscle spasms [Not Recovered/Not Resolved]
  - Cystitis [Recovered/Resolved]
  - Hot flush [Unknown]
  - Mouth swelling [Unknown]
  - Mouth ulceration [Recovering/Resolving]
  - Vaginal infection [Recovered/Resolved]
  - Vulvovaginal pain [Unknown]
  - Foot deformity [Not Recovered/Not Resolved]
  - Bladder pain [Not Recovered/Not Resolved]
  - Fatigue [Unknown]
  - Nasopharyngitis [Not Recovered/Not Resolved]

NARRATIVE: CASE EVENT DATE: 201204
